FAERS Safety Report 7644595-3 (Version None)
Quarter: 2011Q3

REPORT INFORMATION
  Report Type: 
  Country: None (occurrence: None)
  Receive Date: 20110729
  Receipt Date: 20110726
  Transmission Date: 20111222
  Serious: Yes (Life-Threatening, Hospitalization)
  Sender: FDA-Public Use
  Company Number: JP-PFIZER INC-2011170092

PATIENT
  Age: 64 Year
  Sex: Male

DRUGS (2)
  1. VANCOMYCIN [Concomitant]
     Dosage: UNK
     Dates: start: 20110422, end: 20110602
  2. ZYVOX [Suspect]
     Dosage: 1200 MG, 1X/DAY
     Route: 048
     Dates: start: 20110603, end: 20110606

REACTIONS (1)
  - AGRANULOCYTOSIS [None]
